FAERS Safety Report 13286321 (Version 1)
Quarter: 2017Q1

REPORT INFORMATION
  Report Type: Spontaneous
  Country: US (occurrence: US)
  Receive Date: 20170302
  Receipt Date: 20170302
  Transmission Date: 20170428
  Serious: No
  Sender: FDA-Public Use
  Company Number: US-ALLERGAN-1000083908

PATIENT
  Age: 44 Year
  Sex: Male

DRUGS (1)
  1. VIIBRYD [Suspect]
     Active Substance: VILAZODONE HYDROCHLORIDE
     Dosage: PARTIAL DOSES

REACTIONS (3)
  - Off label use [Not Recovered/Not Resolved]
  - Paraesthesia [Unknown]
  - Unevaluable event [Not Recovered/Not Resolved]
